FAERS Safety Report 4333969-4 (Version None)
Quarter: 2004Q2

REPORT INFORMATION
  Report Type: 
  Country: None (occurrence: None)
  Receive Date: 20040402
  Receipt Date: 20040323
  Transmission Date: 20050107
  Serious: Yes (Other)
  Sender: FDA-Public Use
  Company Number: 2004020223

PATIENT
  Age: 80 Year
  Sex: Male

DRUGS (1)
  1. CARDURA XL [Suspect]
     Indication: HYPERTENSION
     Dosage: 4 MG (DAILY), ORAL
     Route: 048
     Dates: start: 20040214

REACTIONS (2)
  - FALL [None]
  - LOSS OF CONSCIOUSNESS [None]
